FAERS Safety Report 17794910 (Version 1)
Quarter: 2020Q2

REPORT INFORMATION
  Report Type: Spontaneous
  Country: FR (occurrence: FR)
  Receive Date: 20200515
  Receipt Date: 20200515
  Transmission Date: 20200714
  Serious: Yes (Other)
  Sender: FDA-Public Use
  Company Number: FR-MYLANLABS-2020M1047821

PATIENT
  Age: 2 Day
  Sex: Male
  Weight: 3.1 kg

DRUGS (1)
  1. NORADRENALINE MYLAN [Suspect]
     Active Substance: NOREPINEPHRINE\NOREPINEPHRINE BITARTRATE
     Indication: PRODUCT USED FOR UNKNOWN INDICATION
     Dosage: 0.6 ?G/MIN
     Route: 041
     Dates: start: 20200211, end: 20200212

REACTIONS (4)
  - Skin necrosis [Recovered/Resolved]
  - Extravasation [Recovered/Resolved]
  - Eschar [Recovered/Resolved]
  - Product administration error [Recovered/Resolved]

NARRATIVE: CASE EVENT DATE: 20200212
